FAERS Safety Report 19803300 (Version 1)
Quarter: 2021Q3

REPORT INFORMATION
  Report Type: Spontaneous
  Country: US (occurrence: US)
  Receive Date: 20210903
  Receipt Date: 20210903
  Transmission Date: 20211014
  Serious: No
  Sender: FDA-Public Use
  Company Number: None

PATIENT

DRUGS (1)
  1. ILARIS [Suspect]
     Active Substance: CANAKINUMAB
     Indication: PYREXIA
     Route: 058
     Dates: start: 20200914

REACTIONS (5)
  - Back pain [None]
  - Weight decreased [None]
  - Abdominal pain [None]
  - Diarrhoea [None]
  - Pancreatic disorder [None]
